FAERS Safety Report 6421542-3 (Version None)
Quarter: 2009Q4

REPORT INFORMATION
  Report Type: 
  Country: None (occurrence: None)
  Receive Date: 20091030
  Receipt Date: 20091022
  Transmission Date: 20100525
  Serious: Yes (Hospitalization, Disabling)
  Sender: FDA-Public Use
  Company Number: US-PFIZER INC-2009288213

PATIENT
  Sex: Female
  Weight: 81.646 kg

DRUGS (3)
  1. CELEBREX [Suspect]
     Indication: OSTEOARTHRITIS
     Dosage: 200 MG, 1X/DAY
     Dates: start: 20040101
  2. NEXIUM [Suspect]
  3. ALLOPURINOL [Concomitant]
     Indication: GOUTY ARTHRITIS
     Dosage: 300 MG, UNK

REACTIONS (7)
  - ABDOMINAL DISCOMFORT [None]
  - BLOOD CREATININE INCREASED [None]
  - BLOOD PRESSURE INCREASED [None]
  - BLOOD UREA INCREASED [None]
  - BONE DISORDER [None]
  - OSTEOARTHRITIS [None]
  - PAIN [None]
